FAERS Safety Report 4865764-1 (Version None)
Quarter: 2005Q4

REPORT INFORMATION
  Report Type: 
  Country: None (occurrence: None)
  Receive Date: 20051220
  Receipt Date: 20051214
  Transmission Date: 20060501
  Serious: Yes (Death)
  Sender: FDA-Public Use
  Company Number: 2005-CZ-01398

PATIENT
  Age: 36 Year
  Sex: Male

DRUGS (5)
  1. PAXENE [Suspect]
     Indication: GERM CELL CANCER
     Dosage: 365 MG, INTRAVENOUS (NOT OTHERWISE SPECIFIED)
     Route: 042
     Dates: start: 20051011
  2. BLEOMYCIN [Concomitant]
  3. CISPLATIN [Concomitant]
  4. ETOPOSIDE [Concomitant]
  5. FILGRASTAM [Concomitant]

REACTIONS (8)
  - BLOOD POTASSIUM INCREASED [None]
  - CANDIDA SEPSIS [None]
  - DEEP VEIN THROMBOSIS [None]
  - DIARRHOEA HAEMORRHAGIC [None]
  - GENERAL PHYSICAL HEALTH DETERIORATION [None]
  - NEUTROPENIA [None]
  - RECTAL HAEMORRHAGE [None]
  - RENAL FAILURE ACUTE [None]
